FAERS Safety Report 5133762-9 (Version None)
Quarter: 2006Q4

REPORT INFORMATION
  Report Type: 
  Country: None (occurrence: None)
  Receive Date: 20061024
  Receipt Date: 20061013
  Transmission Date: 20070319
  Serious: Yes (Other)
  Sender: FDA-Public Use
  Company Number: US-JNJFOC-20061003707

PATIENT
  Sex: Female
  Weight: 40.82 kg

DRUGS (8)
  1. DURAGESIC-100 [Suspect]
     Route: 062
  2. DURAGESIC-100 [Suspect]
     Route: 062
  3. DURAGESIC-100 [Suspect]
     Route: 062
  4. DURAGESIC-100 [Suspect]
     Indication: PAIN
     Route: 062
  5. OXYCONTIN [Suspect]
     Indication: PAIN
     Route: 048
  6. FIORICET [Concomitant]
     Route: 048
  7. IMITREX [Concomitant]
     Route: 058
  8. PRILOSEC [Concomitant]
     Route: 048

REACTIONS (9)
  - AGITATION [None]
  - ANXIETY [None]
  - ASTHMA [None]
  - DRUG WITHDRAWAL SYNDROME [None]
  - HOSTILITY [None]
  - INJURY [None]
  - PHARMACEUTICAL PRODUCT COMPLAINT [None]
  - PNEUMONIA [None]
  - THERAPEUTIC RESPONSE DECREASED [None]
